FAERS Safety Report 11398643 (Version 1)
Quarter: 2015Q3

REPORT INFORMATION
  Report Type: Spontaneous
  Country: DK (occurrence: DK)
  Receive Date: 20150820
  Receipt Date: 20150820
  Transmission Date: 20151125
  Serious: Yes (Other)
  Sender: FDA-Public Use
  Company Number: DK-ELI_LILLY_AND_COMPANY-DK201508002909

PATIENT
  Sex: Female
  Weight: 60 kg

DRUGS (2)
  1. RISPERDAL CONSTA [Suspect]
     Active Substance: RISPERIDONE
     Indication: MENTAL DISORDER
     Dosage: 37.5 MG, UNKNOWN
     Route: 065
  2. STRATTERA [Suspect]
     Active Substance: ATOMOXETINE HYDROCHLORIDE
     Indication: MENTAL DISORDER
     Dosage: 25 MG, BID
     Route: 065
     Dates: start: 201503

REACTIONS (2)
  - Off label use [Unknown]
  - Visual field defect [Not Recovered/Not Resolved]
